FAERS Safety Report 10156122 (Version 1)
Quarter: 2014Q2

REPORT INFORMATION
  Report Type: Spontaneous
  Country: US (occurrence: US)
  Receive Date: 20140506
  Receipt Date: 20140506
  Transmission Date: 20141212
  Serious: No
  Sender: FDA-Public Use
  Company Number: US-009507513-2012SP008746

PATIENT
  Age: 6 Year
  Sex: Male
  Weight: 22.68 kg

DRUGS (2)
  1. CLARITIN [Suspect]
     Indication: RHINORRHOEA
     Dosage: 10 MG, PRN
     Route: 048
  2. CLARITIN [Suspect]
     Indication: NASOPHARYNGITIS
     Dosage: 20 MG, ONCE
     Route: 048
     Dates: start: 20120208

REACTIONS (1)
  - Overdose [Unknown]
